FAERS Safety Report 4385010-5 (Version None)
Quarter: 2004Q2

REPORT INFORMATION
  Report Type: 
  Country: None (occurrence: None)
  Receive Date: 20040623
  Receipt Date: 20040623
  Transmission Date: 20050107
  Serious: Yes (Other)
  Sender: FDA-Public Use
  Company Number: None

PATIENT
  Age: 40 Year
  Sex: Male

DRUGS (1)
  1. ATAZANAVIR  300 MG PO QD [Suspect]
     Indication: HIV INFECTION
     Dosage: 300 MG PO QD
     Route: 048

REACTIONS (1)
  - BLOOD BILIRUBIN INCREASED [None]
